FAERS Safety Report 11596534 (Version 1)
Quarter: 2015Q4

REPORT INFORMATION
  Report Type: Spontaneous
  Country: US (occurrence: None)
  Receive Date: 20151005
  Receipt Date: 20151005
  Transmission Date: 20160304
  Serious: Yes (Death, Life-Threatening, Hospitalization, Disabling)
  Sender: FDA-Public Use
  Company Number: None

PATIENT
  Age: 64 Year
  Sex: Male
  Weight: 63.5 kg

DRUGS (6)
  1. METHOTREXATE [Concomitant]
     Active Substance: METHOTREXATE
  2. ASPIRIN. [Concomitant]
     Active Substance: ASPIRIN
  3. BLOOD THINNERS [Concomitant]
     Active Substance: UNSPECIFIED INGREDIENT
  4. VITAMIN B [Concomitant]
     Active Substance: VITAMIN B
  5. PACEMAKER [Concomitant]
  6. XELJANZ [Suspect]
     Active Substance: TOFACITINIB CITRATE
     Indication: RHEUMATOID ARTHRITIS
     Dosage: 2 PILLS TWICE DAILY TAKEN BY MOUTH
     Route: 048
     Dates: start: 20150507, end: 20150720

REACTIONS (8)
  - Multi-organ failure [None]
  - Hypotension [None]
  - Fall [None]
  - General physical health deterioration [None]
  - Loss of consciousness [None]
  - Pyrexia [None]
  - Sepsis [None]
  - Jaw fracture [None]

NARRATIVE: CASE EVENT DATE: 20150727
